FAERS Safety Report 11825048 (Version 1)
Quarter: 2015Q4

REPORT INFORMATION
  Report Type: Spontaneous
  Country: US (occurrence: US)
  Receive Date: 20151211
  Receipt Date: 20151211
  Transmission Date: 20160305
  Serious: Yes (Other)
  Sender: FDA-Public Use
  Company Number: US-NOVEN PHARMACEUTICALS, INC.-US2015000160

PATIENT
  Sex: Female

DRUGS (1)
  1. FENTANYL. [Suspect]
     Active Substance: FENTANYL
     Indication: PRODUCT USED FOR UNKNOWN INDICATION
     Dosage: UNK
     Route: 062

REACTIONS (7)
  - Respiratory arrest [Unknown]
  - Application site discolouration [Unknown]
  - Product packaging issue [Unknown]
  - Application site vesicles [Unknown]
  - Impaired healing [Unknown]
  - Application site reaction [Unknown]
  - Overdose [Unknown]

NARRATIVE: CASE EVENT DATE: 20141128
